FAERS Safety Report 4966778-3 (Version None)
Quarter: 2006Q2

REPORT INFORMATION
  Report Type: 
  Country: None (occurrence: None)
  Receive Date: 20060407
  Receipt Date: 20060330
  Transmission Date: 20061013
  Serious: Yes (Hospitalization, Disabling)
  Sender: FDA-Public Use
  Company Number: US-MERCK-0604USA00119

PATIENT
  Age: 64 Year
  Sex: Male
  Weight: 100 kg

DRUGS (6)
  1. VIOXX [Suspect]
     Indication: ARTHRITIS
     Route: 048
     Dates: start: 20030301, end: 20040101
  2. ZOCOR [Concomitant]
     Route: 048
  3. ALTACE [Concomitant]
     Route: 065
  4. VICODIN [Concomitant]
     Route: 065
  5. ATIVAN [Concomitant]
     Route: 065
  6. ALBUTEROL [Concomitant]
     Route: 065

REACTIONS (24)
  - ABSCESS [None]
  - ACUTE CORONARY SYNDROME [None]
  - ACUTE MYOCARDIAL INFARCTION [None]
  - ANGINA UNSTABLE [None]
  - ARRHYTHMIA [None]
  - ARTERIOSCLEROSIS [None]
  - ATELECTASIS [None]
  - BACTERAEMIA [None]
  - CARDIAC FAILURE CONGESTIVE [None]
  - CHEST PAIN [None]
  - CHOLECYSTITIS [None]
  - CONFUSIONAL STATE [None]
  - COUGH [None]
  - DIVERTICULITIS [None]
  - DYSPNOEA [None]
  - EMPHYSEMA [None]
  - HYPERLIPIDAEMIA [None]
  - LUNG INFILTRATION [None]
  - NIGHT SWEATS [None]
  - PNEUMONIA [None]
  - PSEUDOMONAL BACTERAEMIA [None]
  - SEPSIS [None]
  - SINUSITIS [None]
  - URINARY TRACT INFECTION [None]
